FAERS Safety Report 8504241-3 (Version None)
Quarter: 2012Q2

REPORT INFORMATION
  Report Type: 
  Country: None (occurrence: None)
  Receive Date: 20120405
  Receipt Date: 20101220
  Transmission Date: 20120825
  Serious: Yes (Other)
  Sender: FDA-Public Use
  Company Number: PHHY2010US71186

PATIENT
  Age: 65 Year
  Sex: Male

DRUGS (11)
  1. MULTIVITAMINS (ASCORBIC ACID, ERGOCALCIFEROL, FOLIC ACID, NICOTINAMIDE [Concomitant]
  2. LIPITOR [Concomitant]
  3. ACCUNEB (SALBUTAMOL SULFATE) [Concomitant]
  4. ASPIRIN [Concomitant]
  5. SYMBICORT [Concomitant]
  6. RECLAST [Suspect]
     Indication: OSTEOPOROSIS POSTMENOPAUSAL
     Dosage: 5 MG, INTRAVENOUS
     Route: 042
     Dates: start: 20101016
  7. COREG [Concomitant]
  8. ALBUTEROL [Concomitant]
  9. METFORMIN HYDROCHLORIDE [Concomitant]
  10. SPIRIVA [Concomitant]
  11. LISINOPRIL AND HYDROCHLOROTHIAZIDE [Concomitant]

REACTIONS (5)
  - BONE SWELLING [None]
  - HEADACHE [None]
  - RASH ERYTHEMATOUS [None]
  - PRURITUS [None]
  - RASH GENERALISED [None]
